FAERS Safety Report 8616044-X (Version None)
Quarter: 2012Q3

REPORT INFORMATION
  Report Type: 
  Country: None (occurrence: None)
  Receive Date: 20120823
  Receipt Date: 20120817
  Transmission Date: 20120928
  Serious: Yes (Other)
  Sender: FDA-Public Use
  Company Number: US-ROCHE-1065341

PATIENT
  Sex: Male
  Weight: 66.738 kg

DRUGS (1)
  1. ACCUTANE [Suspect]
     Indication: ACNE
     Dates: start: 19971101, end: 19980501

REACTIONS (8)
  - CROHN'S DISEASE [None]
  - GASTRIC ULCER [None]
  - INTESTINAL POLYP [None]
  - SUICIDAL IDEATION [None]
  - SUICIDE ATTEMPT [None]
  - DEPRESSION [None]
  - BIPOLAR DISORDER [None]
  - IRRITABLE BOWEL SYNDROME [None]
